FAERS Safety Report 7556987-1 (Version None)
Quarter: 2011Q2

REPORT INFORMATION
  Report Type: 
  Country: None (occurrence: None)
  Receive Date: 20110616
  Receipt Date: 20110616
  Transmission Date: 20111010
  Serious: Yes (Other)
  Sender: FDA-Public Use
  Company Number: None

PATIENT
  Age: 49 Year
  Sex: Male
  Weight: 113.3993 kg

DRUGS (3)
  1. SEROQUEL [Suspect]
     Indication: SLEEP DISORDER
     Dates: start: 20110419, end: 20110422
  2. SEROQUEL [Suspect]
     Indication: MOOD ALTERED
     Dates: start: 20110419, end: 20110422
  3. CHLORPROMAZINE [Suspect]
     Indication: MOOD ALTERED
     Dates: start: 20110419, end: 20110422

REACTIONS (2)
  - RESTLESSNESS [None]
  - COGWHEEL RIGIDITY [None]
